FAERS Safety Report 5370695-7 (Version None)
Quarter: 2007Q2

REPORT INFORMATION
  Report Type: 
  Country: None (occurrence: None)
  Receive Date: 20070622
  Receipt Date: 20070611
  Transmission Date: 20071010
  Serious: Yes (Hospitalization)
  Sender: FDA-Public Use
  Company Number: 2007AL002383

PATIENT
  Age: 19 Year
  Sex: Male

DRUGS (2)
  1. CITALOPRAM HYDROBROMIDE [Suspect]
     Dosage: X1; PO
     Route: 048
     Dates: start: 20070520, end: 20070520
  2. ALCOHOL [Concomitant]

REACTIONS (3)
  - ALCOHOL USE [None]
  - CONVULSION [None]
  - OVERDOSE [None]
